FAERS Safety Report 18982245 (Version 1)
Quarter: 2021Q1

REPORT INFORMATION
  Report Type: Spontaneous
  Country: CN (occurrence: CN)
  Receive Date: 20210308
  Receipt Date: 20210308
  Transmission Date: 20210420
  Serious: Yes (Other)
  Sender: FDA-Public Use
  Company Number: CN-ELI_LILLY_AND_COMPANY-CN202103000251

PATIENT

DRUGS (2)
  1. CIALIS [Suspect]
     Active Substance: TADALAFIL
     Indication: BLOOD PRESSURE INCREASED
     Dosage: UNK, UNKNOWN
     Route: 064
     Dates: start: 20200420
  2. CIALIS [Suspect]
     Active Substance: TADALAFIL
     Indication: BLOOD PRESSURE INCREASED
     Dosage: UNK, UNKNOWN
     Route: 064
     Dates: start: 20200420

REACTIONS (2)
  - Foetal malposition [Unknown]
  - Foetal exposure during pregnancy [Unknown]
